FAERS Safety Report 7994994-5 (Version None)
Quarter: 2011Q4

REPORT INFORMATION
  Report Type: 
  Country: None (occurrence: None)
  Receive Date: 20111220
  Receipt Date: 20111210
  Transmission Date: 20120403
  Serious: Yes (Hospitalization)
  Sender: FDA-Public Use
  Company Number: US-JNJFOC-20100904940

PATIENT
  Age: 65 Year
  Sex: Male
  Weight: 108 kg

DRUGS (40)
  1. RITUXIMAB [Suspect]
     Route: 042
  2. VINCRISTINE [Suspect]
     Route: 065
  3. IFOSFAMIDE [Suspect]
     Route: 065
  4. IFOSFAMIDE [Suspect]
     Route: 065
  5. ETOPOSIDE [Suspect]
     Route: 065
  6. DOXORUBICIN HCL [Suspect]
     Route: 042
     Dates: end: 20101202
  7. ETOPOSIDE [Suspect]
     Route: 065
  8. LEUCOVORIN CALCIUM [Suspect]
     Indication: BURKITT'S LYMPHOMA STAGE IV
     Route: 065
  9. DOXORUBICIN HCL [Suspect]
     Indication: BURKITT'S LYMPHOMA STAGE IV
     Dosage: ONE TIME ON DAY ONE.
     Route: 042
  10. METHOTREXATE [Suspect]
     Route: 042
  11. VINCRISTINE [Suspect]
     Indication: BURKITT'S LYMPHOMA STAGE IV
     Route: 065
  12. VINCRISTINE [Suspect]
     Route: 065
  13. CYCLOPHOSPHAMIDE [Suspect]
     Route: 065
  14. CYTARABINE [Suspect]
     Indication: BURKITT'S LYMPHOMA STAGE IV
     Route: 065
  15. LEUCOVORIN CALCIUM [Suspect]
     Route: 065
  16. FILGRASTIM [Suspect]
     Route: 065
  17. METHOTREXATE [Suspect]
     Indication: BURKITT'S LYMPHOMA STAGE IV
     Route: 042
  18. RITUXIMAB [Suspect]
     Route: 042
  19. IFOSFAMIDE [Suspect]
     Route: 065
  20. ETOPOSIDE [Suspect]
     Indication: BURKITT'S LYMPHOMA STAGE IV
     Route: 065
  21. CYTARABINE [Suspect]
     Route: 065
  22. LEUCOVORIN CALCIUM [Suspect]
     Route: 065
  23. RITUXIMAB [Suspect]
     Route: 042
  24. FILGRASTIM [Suspect]
     Indication: BURKITT'S LYMPHOMA STAGE IV
     Route: 065
  25. VINCRISTINE [Suspect]
     Route: 065
  26. CYCLOPHOSPHAMIDE [Suspect]
     Indication: BURKITT'S LYMPHOMA STAGE IV
     Route: 065
  27. ETOPOSIDE [Suspect]
     Route: 065
  28. CYTARABINE [Suspect]
     Route: 065
  29. CYTARABINE [Suspect]
     Route: 065
  30. FILGRASTIM [Suspect]
     Route: 065
  31. FILGRASTIM [Suspect]
     Route: 065
  32. DOXORUBICIN HCL [Suspect]
     Route: 042
     Dates: start: 20100810
  33. DOXORUBICIN HCL [Suspect]
     Dosage: ONE TIME ON DAY ONE.
     Route: 042
     Dates: start: 20100811, end: 20100811
  34. METHOTREXATE [Suspect]
     Route: 042
  35. LEUCOVORIN CALCIUM [Suspect]
     Route: 065
  36. METHOTREXATE [Suspect]
     Route: 042
  37. RITUXIMAB [Suspect]
     Indication: BURKITT'S LYMPHOMA STAGE IV
     Route: 042
  38. IFOSFAMIDE [Suspect]
     Indication: BURKITT'S LYMPHOMA STAGE IV
     Route: 065
  39. CYCLOPHOSPHAMIDE [Suspect]
     Route: 065
  40. CYCLOPHOSPHAMIDE [Suspect]
     Route: 065

REACTIONS (8)
  - HYPOCALCAEMIA [None]
  - LYMPHOPENIA [None]
  - GASTROINTESTINAL HAEMORRHAGE [None]
  - LEUKOPENIA [None]
  - THROMBOCYTOPENIA [None]
  - FEBRILE NEUTROPENIA [None]
  - STOMATITIS [None]
  - BLOOD MAGNESIUM ABNORMAL [None]
